FAERS Safety Report 14144210 (Version 6)
Quarter: 2020Q1

REPORT INFORMATION
  Report Type: Report from Study
  Country: IL (occurrence: IL)
  Receive Date: 20171031
  Receipt Date: 20200309
  Transmission Date: 20200409
  Serious: Yes (Hospitalization, Other)
  Sender: FDA-Public Use
  Company Number: IL-ACTELION-A-CH2017-161327

PATIENT
  Age: 81 Year
  Sex: Female

DRUGS (10)
  1. NOVONORM [Concomitant]
     Active Substance: REPAGLINIDE
  2. UPTRAVI [Suspect]
     Active Substance: SELEXIPAG
     Indication: PULMONARY ARTERIAL HYPERTENSION
     Dosage: 400 ?G, BID
     Route: 048
     Dates: start: 20170517
  3. RELVAR [Concomitant]
     Active Substance: FLUTICASONE FUROATE\VILANTEROL TRIFENATATE
  4. SIMVASTATIN. [Concomitant]
     Active Substance: SIMVASTATIN
  5. OPSUMIT [Suspect]
     Active Substance: MACITENTAN
     Indication: PULMONARY ARTERIAL HYPERTENSION
     Dosage: 10 MG, QD
     Route: 048
     Dates: start: 20161010
  6. OMEPRADEX [Concomitant]
     Active Substance: OMEPRAZOLE
  7. LETROZOLE. [Concomitant]
     Active Substance: LETROZOLE
  8. COLOTAL [Concomitant]
  9. XARELTO [Concomitant]
     Active Substance: RIVAROXABAN
  10. CARDILOC [Concomitant]
     Active Substance: BISOPROLOL FUMARATE

REACTIONS (9)
  - Renal stone removal [Unknown]
  - Bladder cyst [Unknown]
  - Haemoglobin decreased [Recovering/Resolving]
  - Metastases to bladder [Unknown]
  - Hand fracture [Not Recovered/Not Resolved]
  - Blood iron decreased [Unknown]
  - Bladder operation [Unknown]
  - Fall [Unknown]
  - Haematuria [Not Recovered/Not Resolved]

NARRATIVE: CASE EVENT DATE: 20171004
